FAERS Safety Report 8515038-2 (Version None)
Quarter: 2012Q3

REPORT INFORMATION
  Report Type: 
  Country: None (occurrence: None)
  Receive Date: 20120717
  Receipt Date: 20120709
  Transmission Date: 20120928
  Serious: Yes (Hospitalization)
  Sender: FDA-Public Use
  Company Number: CA-JNJFOC-20120704354

PATIENT
  Sex: Female
  Weight: 68.2 kg

DRUGS (5)
  1. SEROQUEL [Concomitant]
     Route: 065
  2. ALL OTHER THERAPEUTIC PRODUCTS [Concomitant]
     Route: 065
  3. REMICADE [Suspect]
     Indication: CROHN'S DISEASE
     Route: 042
     Dates: start: 20091001
  4. NABILONE [Concomitant]
     Route: 065
  5. VALPROATE SODIUM [Concomitant]
     Route: 065

REACTIONS (4)
  - MALAISE [None]
  - SINUSITIS [None]
  - BRONCHITIS [None]
  - FISTULA [None]
